FAERS Safety Report 8388465-4 (Version None)
Quarter: 2012Q2

REPORT INFORMATION
  Report Type: 
  Country: None (occurrence: None)
  Receive Date: 20120525
  Receipt Date: 20120516
  Transmission Date: 20120825
  Serious: Yes (Death)
  Sender: FDA-Public Use
  Company Number: JP-ROCHE-1069526

PATIENT
  Sex: Female

DRUGS (5)
  1. EDARAVONE [Concomitant]
     Route: 042
     Dates: start: 20120502
  2. OMEPRAZOLE [Concomitant]
     Indication: PEPTIC ULCER
     Route: 041
     Dates: start: 20120502
  3. GRTPA [Suspect]
     Indication: THROMBOLYSIS
     Route: 042
     Dates: start: 20110502
  4. FAMOTIDINE [Concomitant]
     Indication: PEPTIC ULCER
  5. NICARDIPINE HCL [Concomitant]
     Route: 041
     Dates: start: 20120502

REACTIONS (1)
  - CEREBRAL HAEMORRHAGE [None]
